FAERS Safety Report 7328956-8 (Version None)
Quarter: 2011Q1

REPORT INFORMATION
  Report Type: 
  Country: None (occurrence: None)
  Receive Date: 20110225
  Receipt Date: 20110225
  Transmission Date: 20110831
  Serious: Yes (Other)
  Sender: FDA-Public Use
  Company Number: None

PATIENT
  Age: 42 Year
  Weight: 56.6996 kg

DRUGS (2)
  1. SINGULAIR [Suspect]
     Indication: ASTHMA
     Dosage: 10 NG QD PO
     Route: 048
     Dates: start: 20080101, end: 20110129
  2. SINGULAIR [Suspect]
     Indication: HYPERSENSITIVITY
     Dosage: 10 NG QD PO
     Route: 048
     Dates: start: 20080101, end: 20110129

REACTIONS (11)
  - MOUTH ULCERATION [None]
  - ULCER [None]
  - PAIN IN EXTREMITY [None]
  - FATIGUE [None]
  - MUSCULOSKELETAL CHEST PAIN [None]
  - HYPERTENSION [None]
  - FEELING ABNORMAL [None]
  - BLOOD PRESSURE FLUCTUATION [None]
  - PARAESTHESIA [None]
  - MENTAL DISORDER [None]
  - SKIN LESION [None]
